FAERS Safety Report 21245534 (Version 1)
Quarter: 2022Q3

REPORT INFORMATION
  Report Type: Report from Study
  Country: CR (occurrence: CR)
  Receive Date: 20220824
  Receipt Date: 20220824
  Transmission Date: 20221027
  Serious: Yes (Other)
  Sender: FDA-Public Use
  Company Number: CR-NOVARTISPH-PHHY2019CR126578

PATIENT
  Sex: Female
  Weight: 64 kg

DRUGS (1)
  1. SECUKINUMAB [Suspect]
     Active Substance: SECUKINUMAB
     Indication: Ankylosing spondylitis
     Dosage: 150 MG, QMO
     Route: 058
     Dates: start: 20190513

REACTIONS (16)
  - Breast cancer [Recovering/Resolving]
  - Dysphonia [Unknown]
  - Oropharyngeal pain [Recovering/Resolving]
  - Discomfort [Unknown]
  - Vocal cord paresis [Unknown]
  - Malaise [Not Recovered/Not Resolved]
  - Osteoarthritis [Not Recovered/Not Resolved]
  - Sacral pain [Not Recovered/Not Resolved]
  - Throat irritation [Not Recovered/Not Resolved]
  - Fatigue [Recovering/Resolving]
  - Dyspnoea [Unknown]
  - Musculoskeletal discomfort [Unknown]
  - Gastrooesophageal reflux disease [Recovering/Resolving]
  - Pain [Recovering/Resolving]
  - Headache [Recovering/Resolving]
  - Oropharyngeal discomfort [Recovering/Resolving]
